FAERS Safety Report 9316163 (Version 1)
Quarter: 2013Q2

REPORT INFORMATION
  Report Type: Spontaneous
  Country: US (occurrence: None)
  Receive Date: 20130528
  Receipt Date: 20130528
  Transmission Date: 20140414
  Serious: No
  Sender: FDA-Public Use
  Company Number: None

PATIENT
  Sex: Female

DRUGS (1)
  1. CIMZIA [Suspect]
     Dosage: EVERY 4 WEEKS
     Route: 058
     Dates: start: 20130119, end: 20130516

REACTIONS (3)
  - Fatigue [None]
  - Pyrexia [None]
  - Chest pain [None]
